FAERS Safety Report 4545994-9 (Version None)
Quarter: 2005Q1

REPORT INFORMATION
  Report Type: 
  Country: None (occurrence: None)
  Receive Date: 20050105
  Receipt Date: 20050105
  Transmission Date: 20050727
  Serious: Yes (Disabling)
  Sender: FDA-Public Use
  Company Number: None

PATIENT
  Age: 76 Year
  Sex: Female
  Weight: 65.7716 kg

DRUGS (2)
  1. PROMETHAZINE [Suspect]
     Indication: NAUSEA
     Dosage: 25MG   PRN   INTRAVENOU
     Route: 042
     Dates: start: 20041210, end: 20041210
  2. PROMETHAZINE [Suspect]
     Indication: VOMITING
     Dosage: 25MG   PRN   INTRAVENOU
     Route: 042
     Dates: start: 20041210, end: 20041210

REACTIONS (4)
  - CARDIOVASCULAR DISORDER [None]
  - FINGER AMPUTATION [None]
  - GANGRENE [None]
  - INFUSION SITE REACTION [None]
